APPROVED DRUG PRODUCT: KETAMINE HYDROCHLORIDE
Active Ingredient: KETAMINE HYDROCHLORIDE
Strength: EQ 50MG BASE/ML
Dosage Form/Route: INJECTABLE;INJECTION
Application: A076092 | Product #002 | TE Code: AP
Applicant: EUGIA PHARMA SPECIALITIES LTD
Approved: Dec 28, 2001 | RLD: No | RS: No | Type: RX